FAERS Safety Report 24849141 (Version 2)
Quarter: 2025Q1

REPORT INFORMATION
  Report Type: Spontaneous
  Country: AU (occurrence: AU)
  Receive Date: 20250116
  Receipt Date: 20250122
  Transmission Date: 20250408
  Serious: No
  Sender: PFIZER
  Company Number: AU-MLMSERVICE-20250106-PI330962-00201-3

PATIENT
  Age: 4 Decade
  Sex: Male

DRUGS (2)
  1. LIDOCAINE HYDROCHLORIDE [Suspect]
     Active Substance: LIDOCAINE HYDROCHLORIDE
  2. LIDOCAINE [Suspect]
     Active Substance: LIDOCAINE

REACTIONS (3)
  - Product confusion [Unknown]
  - Product dispensing error [Unknown]
  - Incorrect dose administered [Unknown]
